FAERS Safety Report 25260019 (Version 1)
Quarter: 2025Q2

REPORT INFORMATION
  Report Type: Spontaneous
  Country: US (occurrence: None)
  Receive Date: 20250501
  Receipt Date: 20250501
  Transmission Date: 20250716
  Serious: Yes (Hospitalization)
  Sender: FDA-CTU
  Company Number: None

PATIENT
  Age: 47 Year
  Sex: Female

DRUGS (1)
  1. ENFORTUMAB VEDOTIN [Suspect]
     Active Substance: ENFORTUMAB VEDOTIN
     Indication: Adenocarcinoma of colon

REACTIONS (16)
  - Infusion related reaction [None]
  - Pleural effusion [None]
  - Nausea [None]
  - Dyspnoea [None]
  - Chest pain [None]
  - Acute kidney injury [None]
  - Sinus tachycardia [None]
  - Pneumothorax [None]
  - Malignant ascites [None]
  - Dehydration [None]
  - Vomiting [None]
  - Hypophagia [None]
  - Metastases to peritoneum [None]
  - Oesophagitis [None]
  - Small intestinal obstruction [None]
  - Pneumonia aspiration [None]

NARRATIVE: CASE EVENT DATE: 20250410
